FAERS Safety Report 5064051-9 (Version None)
Quarter: 2006Q3

REPORT INFORMATION
  Report Type: 
  Country: None (occurrence: None)
  Receive Date: 20060706
  Receipt Date: 20060321
  Transmission Date: 20061208
  Serious: No
  Sender: FDA-Public Use
  Company Number: 200611714BWH

PATIENT
  Age: 66 Year
  Sex: Male

DRUGS (11)
  1. LEVITRA [Suspect]
     Indication: ERECTILE DYSFUNCTION
     Dosage: ORAL
     Route: 048
     Dates: start: 20060308, end: 20060314
  2. NORVASC [Concomitant]
  3. LOTREL [Concomitant]
  4. AVANDIA [Concomitant]
  5. METFORMIN HYDROCHLORIDE [Concomitant]
  6. CALTRATE (CALCIUM CARBONATE) [Concomitant]
  7. MIRAPEX [Concomitant]
  8. DRISDOL [Concomitant]
  9. NOVOLOG [Concomitant]
  10. LANTUS [Concomitant]
  11. NASAL INHALER [Concomitant]

REACTIONS (4)
  - BLOOD GLUCOSE DECREASED [None]
  - DIZZINESS [None]
  - ERECTILE DYSFUNCTION [None]
  - HYPOTENSION [None]
